FAERS Safety Report 14844731 (Version 2)
Quarter: 2018Q2

REPORT INFORMATION
  Report Type: Report from Study
  Country: GB (occurrence: GB)
  Receive Date: 20180504
  Receipt Date: 20180507
  Transmission Date: 20180711
  Serious: Yes (Other)
  Sender: FDA-Public Use
  Company Number: GB-UCBSA-2018017715

PATIENT
  Age: 50 Year
  Sex: Female

DRUGS (1)
  1. CERTOLIZUMAB PEGOL RA AUTOCLICKS [Suspect]
     Active Substance: CERTOLIZUMAB PEGOL
     Indication: RHEUMATOID ARTHRITIS
     Dosage: 400 MG, EV 2 WEEKS(QOW)
     Route: 058
     Dates: start: 20180404

REACTIONS (9)
  - Visual impairment [Unknown]
  - Malaise [Unknown]
  - Headache [Unknown]
  - Vulvovaginal candidiasis [Unknown]
  - Gingival bleeding [Unknown]
  - Drug intolerance [Unknown]
  - Epistaxis [Unknown]
  - Ill-defined disorder [Unknown]
  - Oral herpes [Unknown]

NARRATIVE: CASE EVENT DATE: 201804
